FAERS Safety Report 10218701 (Version 2)
Quarter: 2014Q2

REPORT INFORMATION
  Report Type: Report from Study
  Country: US (occurrence: US)
  Receive Date: 20140605
  Receipt Date: 20140611
  Transmission Date: 20141212
  Serious: Yes (Other)
  Sender: FDA-Public Use
  Company Number: PHEH2014US011054

PATIENT
  Sex: Female

DRUGS (2)
  1. MYFORTIC [Suspect]
     Indication: SYSTEMIC SCLEROSIS
     Dosage: 1080 MG, BID
     Route: 048
  2. MYFORTIC [Suspect]
     Indication: IMPAIRED GASTRIC EMPTYING

REACTIONS (2)
  - Skin ulcer [Unknown]
  - Scleroderma [Unknown]
